FAERS Safety Report 10883879 (Version 4)
Quarter: 2015Q3

REPORT INFORMATION
  Report Type: Report from Study
  Country: BR (occurrence: BR)
  Receive Date: 20150304
  Receipt Date: 20150709
  Transmission Date: 20151125
  Serious: Yes (Hospitalization, Other)
  Sender: FDA-Public Use
  Company Number: BR-ROCHE-1290665

PATIENT
  Age: 71 Year
  Sex: Male
  Weight: 110 kg

DRUGS (17)
  1. MABTHERA [Suspect]
     Active Substance: RITUXIMAB
     Indication: RHEUMATOID ARTHRITIS
     Route: 042
     Dates: start: 20120312, end: 20140909
  2. SIMVASTATIN. [Concomitant]
     Active Substance: SIMVASTATIN
  3. PURAN [Concomitant]
     Active Substance: LEVOTHYROXINE SODIUM
     Route: 065
  4. ALPRAZOLAM. [Concomitant]
     Active Substance: ALPRAZOLAM
  5. GLIMEPIRIDE. [Concomitant]
     Active Substance: GLIMEPIRIDE
  6. ATENSINA [Concomitant]
     Active Substance: CLONIDINE
  7. SULFASALAZINE. [Concomitant]
     Active Substance: SULFASALAZINE
  8. FUROSEMIDE. [Concomitant]
     Active Substance: FUROSEMIDE
  9. APRESOLINE HYDROCHLORIDE [Concomitant]
     Active Substance: HYDRALAZINE HYDROCHLORIDE
  10. XARELTO [Concomitant]
     Active Substance: RIVAROXABAN
  11. OMEPRAZOLE. [Concomitant]
     Active Substance: OMEPRAZOLE
  12. ISORDIL [Concomitant]
     Active Substance: ISOSORBIDE DINITRATE
  13. BISOPROLOL [Concomitant]
     Active Substance: BISOPROLOL
  14. PREDNISONE. [Concomitant]
     Active Substance: PREDNISONE
  15. DIPYRONE [Concomitant]
     Active Substance: DIPYRONE
     Route: 065
  16. CLONAZEPAM. [Concomitant]
     Active Substance: CLONAZEPAM
  17. VASTAREL [Concomitant]
     Active Substance: TRIMETAZIDINE DIHYDROCHLORIDE

REACTIONS (8)
  - Influenza [Recovered/Resolved]
  - Pneumonia [Recovered/Resolved]
  - Peripheral swelling [Recovered/Resolved]
  - Fluid retention [Recovered/Resolved]
  - Pulmonary congestion [Recovered/Resolved]
  - Pulmonary oedema [Unknown]
  - Fatigue [Unknown]
  - Urinary tract infection [Recovered/Resolved]

NARRATIVE: CASE EVENT DATE: 20141008
